FAERS Safety Report 5035479-8 (Version None)
Quarter: 2006Q2

REPORT INFORMATION
  Report Type: 
  Country: None (occurrence: None)
  Receive Date: 20060526
  Receipt Date: 20060324
  Transmission Date: 20061013
  Serious: No
  Sender: FDA-Public Use
  Company Number: FABR-11459

PATIENT
  Age: 33 Year
  Sex: Male

DRUGS (5)
  1. FABRAZYME [Suspect]
     Dosage: 90 MG Q2WKS IV
     Route: 042
     Dates: start: 20031118, end: 20040501
  2. FABRAZYME [Suspect]
     Dosage: 90 MG Q2WKS IV
     Route: 042
     Dates: start: 20050222
  3. ACETAMINOPHEN [Concomitant]
  4. CLARITIN [Concomitant]
  5. RELACORE [Concomitant]

REACTIONS (4)
  - EAR PAIN [None]
  - NAUSEA [None]
  - VERTIGO [None]
  - VOMITING [None]
